FAERS Safety Report 6287275-1 (Version None)
Quarter: 2009Q3

REPORT INFORMATION
  Report Type: 
  Country: None (occurrence: None)
  Receive Date: 20090728
  Receipt Date: 20090722
  Transmission Date: 20100115
  Serious: Yes (Other)
  Sender: FDA-Public Use
  Company Number: US-B.I. PHARMACEUTICALS,INC./RIDGEFIELD-2009-BP-08812BP

PATIENT
  Sex: Female

DRUGS (3)
  1. SPIRIVA [Suspect]
     Indication: HYPERSENSITIVITY
  2. PREDNISONE [Concomitant]
  3. ADVAIR HFA [Concomitant]

REACTIONS (1)
  - CEREBROSPINAL FLUID RETENTION [None]
